FAERS Safety Report 18468958 (Version 2)
Quarter: 2020Q4

REPORT INFORMATION
  Report Type: Spontaneous
  Country: BR (occurrence: BR)
  Receive Date: 20201105
  Receipt Date: 20201208
  Transmission Date: 20210114
  Serious: Yes (Hospitalization, Other)
  Sender: FDA-Public Use
  Company Number: BR-IPSEN BIOPHARMACEUTICALS, INC.-2020-20934

PATIENT
  Age: 53 Year
  Sex: Female
  Weight: 79 kg

DRUGS (4)
  1. CABERGOLINE. [Concomitant]
     Active Substance: CABERGOLINE
     Indication: BLOOD GROWTH HORMONE INCREASED
     Dosage: 1 TABLET EACH DAY
     Route: 048
     Dates: start: 2012
  2. PURAN [Concomitant]
     Active Substance: LEVOTHYROXINE SODIUM
     Indication: THYROID DISORDER
  3. PREDNISONE. [Concomitant]
     Active Substance: PREDNISONE
     Dosage: 1 TABLET EACH DAY
     Route: 048
     Dates: start: 2012
  4. SOMATULINE AUTOGEL [Suspect]
     Active Substance: LANREOTIDE ACETATE
     Indication: ACROMEGALY
     Route: 058
     Dates: start: 2016

REACTIONS (6)
  - Device breakage [Unknown]
  - Product dose omission issue [Unknown]
  - Procedural haemorrhage [Unknown]
  - Cardiac arrest [Unknown]
  - Tumour excision [Unknown]
  - Dizziness [Unknown]

NARRATIVE: CASE EVENT DATE: 2017
